FAERS Safety Report 4868863-3 (Version None)
Quarter: 2005Q4

REPORT INFORMATION
  Report Type: 
  Country: None (occurrence: None)
  Receive Date: 20051229
  Receipt Date: 20030923
  Transmission Date: 20060501
  Serious: Yes (Hospitalization, Disabling)
  Sender: FDA-Public Use
  Company Number: US-MERCK-0309USA02509

PATIENT
  Age: 56 Year
  Sex: Male
  Weight: 73 kg

DRUGS (4)
  1. VIOXX [Suspect]
     Indication: RHEUMATOID ARTHRITIS
     Route: 048
     Dates: start: 20010914, end: 20010917
  2. METHOTREXATE [Concomitant]
     Indication: RHEUMATOID ARTHRITIS
     Route: 065
  3. PREDNISONE [Concomitant]
     Indication: ARTHRITIS
     Route: 065
  4. BERPLEX PLUS [Concomitant]
     Route: 065

REACTIONS (35)
  - ABDOMINAL PAIN [None]
  - ACTINIC KERATOSIS [None]
  - ACUTE MYOCARDIAL INFARCTION [None]
  - ANGINA PECTORIS [None]
  - ARTERIOSCLEROSIS CORONARY ARTERY [None]
  - ASTHENIA [None]
  - BACK PAIN [None]
  - BLOOD CHOLESTEROL INCREASED [None]
  - BLOOD PRESSURE INCREASED [None]
  - BLOOD TRIGLYCERIDES INCREASED [None]
  - BRONCHITIS CHRONIC [None]
  - CALCULUS URETERIC [None]
  - CEREBROVASCULAR ACCIDENT [None]
  - CERVICAL SPINAL STENOSIS [None]
  - CORONARY ARTERY STENOSIS [None]
  - DIVERTICULITIS [None]
  - DRUG INEFFECTIVE [None]
  - EXCORIATION [None]
  - FEELING ABNORMAL [None]
  - HEPATIC ENZYME INCREASED [None]
  - HEPATIC STEATOSIS [None]
  - HYPERCHOLESTEROLAEMIA [None]
  - HYPERHIDROSIS [None]
  - HYPOTENSION [None]
  - NEPHROLITHIASIS [None]
  - ORAL PAIN [None]
  - ORTHOPNOEA [None]
  - SINUSITIS [None]
  - SLEEP APNOEA SYNDROME [None]
  - SNORING [None]
  - SPINAL COLUMN STENOSIS [None]
  - STOMATITIS [None]
  - VENTRICULAR EXTRASYSTOLES [None]
  - VENTRICULAR FIBRILLATION [None]
  - VENTRICULAR TACHYCARDIA [None]
